FAERS Safety Report 7047555-9 (Version None)
Quarter: 2010Q4

REPORT INFORMATION
  Report Type: 
  Country: None (occurrence: None)
  Receive Date: 20101015
  Receipt Date: 20101005
  Transmission Date: 20110411
  Serious: Yes (Other)
  Sender: FDA-Public Use
  Company Number: AT-PFIZER INC-2010112529

PATIENT
  Age: 19 Year
  Sex: Female
  Weight: 52 kg

DRUGS (4)
  1. DOSTINEX [Suspect]
     Indication: HYPERPROLACTINAEMIA
     Dosage: 0.25 MG, WEEKLY
     Route: 048
     Dates: start: 20100308, end: 20100415
  2. DOSTINEX [Suspect]
     Dosage: 0.25 MG, EVERY FOURTH DAY
     Route: 048
     Dates: start: 20100707, end: 20100901
  3. DOSTINEX [Suspect]
     Dosage: 0.25 MG, WEEKLY
     Route: 048
     Dates: start: 20100902
  4. AERIUS [Concomitant]
     Indication: HYPERSENSITIVITY
     Dosage: 5 MG, AS NEEDED

REACTIONS (11)
  - CYANOSIS [None]
  - DEPRESSED MOOD [None]
  - DYSMENORRHOEA [None]
  - FAECES HARD [None]
  - FATIGUE [None]
  - MOOD ALTERED [None]
  - OVULATION PAIN [None]
  - PAIN OF SKIN [None]
  - PERIPHERAL VASCULAR DISORDER [None]
  - PREMENSTRUAL SYNDROME [None]
  - PRESYNCOPE [None]
